FAERS Safety Report 11504120 (Version 1)
Quarter: 2015Q3

REPORT INFORMATION
  Report Type: Spontaneous
  Country: US (occurrence: US)
  Receive Date: 20150914
  Receipt Date: 20150914
  Transmission Date: 20151125
  Serious: No
  Sender: FDA-Public Use
  Company Number: CHPA2015US010759

PATIENT
  Age: 46 Year
  Sex: Female

DRUGS (1)
  1. VOLTAREN [Suspect]
     Active Substance: DICLOFENAC SODIUM
     Indication: OSTEOARTHRITIS
     Dosage: A LITTLE BIT,UNK
     Route: 061
     Dates: start: 2014, end: 2014

REACTIONS (1)
  - Drug dispensed to wrong patient [Unknown]

NARRATIVE: CASE EVENT DATE: 2014
